FAERS Safety Report 24834638 (Version 1)
Quarter: 2025Q1

REPORT INFORMATION
  Report Type: Spontaneous
  Country: US (occurrence: US)
  Receive Date: 20250113
  Receipt Date: 20250113
  Transmission Date: 20250409
  Serious: Yes (Other)
  Sender: AMGEN
  Company Number: US-AMGEN-USASP2025003562

PATIENT
  Age: 25 Year
  Sex: Female

DRUGS (11)
  1. PREDNISONE [Suspect]
     Active Substance: PREDNISONE
     Indication: Systemic lupus erythematosus
     Route: 065
  2. APIXABAN [Concomitant]
     Active Substance: APIXABAN
     Indication: Deep vein thrombosis
  3. SILDENAFIL [Concomitant]
     Active Substance: SILDENAFIL
     Indication: Pulmonary arterial hypertension
  4. MACITENTAN [Concomitant]
     Active Substance: MACITENTAN
     Indication: Pulmonary arterial hypertension
  5. TREPROSTINIL [Concomitant]
     Active Substance: TREPROSTINIL
     Indication: Pulmonary arterial hypertension
     Route: 048
  6. HYDROXYCHLOROQUINE [Concomitant]
     Active Substance: HYDROXYCHLOROQUINE
     Indication: Systemic lupus erythematosus
  7. CYCLOSPORINE [Concomitant]
     Active Substance: CYCLOSPORINE
     Indication: Immunosuppression
  8. ECULIZUMAB [Concomitant]
     Active Substance: ECULIZUMAB
     Indication: Urine flow decreased
     Route: 040
  9. METHYLPREDNISOLONE [Concomitant]
     Active Substance: METHYLPREDNISOLONE
     Indication: Immune system disorder
     Route: 040
  10. TACROLIMUS [Concomitant]
     Active Substance: TACROLIMUS
     Indication: Immune system disorder
  11. GANCICLOVIR [Concomitant]
     Active Substance: GANCICLOVIR
     Indication: Immune system disorder

REACTIONS (7)
  - Anaemia [Unknown]
  - Thrombocytopenia [Unknown]
  - Right ventricular failure [Recovered/Resolved]
  - Thrombotic microangiopathy [Unknown]
  - Acute kidney injury [Unknown]
  - Systemic lupus erythematosus [Unknown]
  - Hepatic enzyme increased [Unknown]
